FAERS Safety Report 6066458-X (Version None)
Quarter: 2009Q1

REPORT INFORMATION
  Report Type: 
  Country: None (occurrence: None)
  Receive Date: 20090205
  Receipt Date: 20090127
  Transmission Date: 20090719
  Serious: Yes (Hospitalization)
  Sender: FDA-Public Use
  Company Number: US-BIOGENIDEC-2008BI032863

PATIENT
  Age: 62 Year
  Sex: Female

DRUGS (14)
  1. TYSABRI [Suspect]
     Indication: MULTIPLE SCLEROSIS
     Route: 042
     Dates: start: 20080825
  2. ZANAFLEX [Concomitant]
  3. PROVIGIL [Concomitant]
     Route: 048
  4. ZONEGRAN [Concomitant]
  5. KEPPRA [Concomitant]
     Route: 048
  6. PHENOBARBITAL [Concomitant]
     Route: 048
  7. FIORICET [Concomitant]
  8. LIDODERM [Concomitant]
  9. FLECTOR [Concomitant]
  10. LEVOXYL [Concomitant]
     Route: 048
  11. VITAMIN D [Concomitant]
     Route: 048
  12. MOBIC [Concomitant]
     Route: 048
  13. DILAUDID [Concomitant]
     Route: 048
  14. DURAGESIC-100 [Concomitant]

REACTIONS (1)
  - SPONDYLOLISTHESIS [None]
